FAERS Safety Report 4890823-7 (Version None)
Quarter: 2006Q1

REPORT INFORMATION
  Report Type: 
  Country: None (occurrence: None)
  Receive Date: 20060123
  Receipt Date: 20060109
  Transmission Date: 20060701
  Serious: Yes (Other)
  Sender: FDA-Public Use
  Company Number: 2006006880

PATIENT
  Sex: Male
  Weight: 81.6475 kg

DRUGS (6)
  1. VIAGRA [Suspect]
     Indication: ILL-DEFINED DISORDER
     Dosage: 50 MG (50 MG)/3 YEARS AGO
  2. SIMVASTATIN [Concomitant]
  3. METFORMIN HCL [Concomitant]
  4. ASPIRIN [Concomitant]
  5. OMEPRAZOLE [Concomitant]
  6. FELODIPINE [Concomitant]

REACTIONS (2)
  - DRUG INEFFECTIVE [None]
  - JOINT INJURY [None]
